FAERS Safety Report 8991182 (Version 1)
Quarter: 2012Q4

REPORT INFORMATION
  Report Type: Spontaneous
  Country: US (occurrence: None)
  Receive Date: 20121227
  Receipt Date: 20121227
  Transmission Date: 20130627
  Serious: No
  Sender: FDA-Public Use
  Company Number: None

PATIENT
  Age: 50 Year
  Sex: Female

DRUGS (1)
  1. ENBREL SURECLICK 50MG AMGEN INC [Suspect]
     Indication: ANKYLOSING SPONDYLITIS
     Dosage: 50MG WEEKLY sq
     Route: 058
     Dates: start: 20121107, end: 20121222

REACTIONS (1)
  - Rash erythematous [None]
